FAERS Safety Report 6703286-3 (Version None)
Quarter: 2010Q2

REPORT INFORMATION
  Report Type: 
  Country: None (occurrence: None)
  Receive Date: 20100430
  Receipt Date: 20100423
  Transmission Date: 20101027
  Serious: Yes (Hospitalization)
  Sender: FDA-Public Use
  Company Number: US-SANOFI-AVENTIS-2010SA024320

PATIENT
  Age: 68 Year
  Sex: Male
  Weight: 60 kg

DRUGS (4)
  1. GLIMEPIRIDE [Suspect]
     Route: 065
     Dates: start: 20100205
  2. ALL OTHER THERAPEUTIC PRODUCTS [Suspect]
     Route: 065
     Dates: start: 20100226, end: 20100402
  3. OXYCONTIN [Concomitant]
     Indication: PAIN
     Route: 065
     Dates: start: 20100322
  4. LISINOPRIL [Concomitant]
     Indication: HYPERTENSION
     Route: 065
     Dates: start: 20090810

REACTIONS (3)
  - DECREASED APPETITE [None]
  - HYPOGLYCAEMIC UNCONSCIOUSNESS [None]
  - PNEUMONIA ASPIRATION [None]
